FAERS Safety Report 21409357 (Version 1)
Quarter: 2022Q4

REPORT INFORMATION
  Report Type: Spontaneous
  Country: US (occurrence: US)
  Receive Date: 20221004
  Receipt Date: 20221004
  Transmission Date: 20230112
  Serious: Yes (Death, Other)
  Sender: FDA-Public Use
  Company Number: US-BRISTOL-MYERS SQUIBB COMPANY-2022-115574

PATIENT
  Age: 61 Year
  Sex: Female
  Weight: 65.9 kg

DRUGS (6)
  1. OPDIVO [Suspect]
     Active Substance: NIVOLUMAB
     Indication: Bile duct cancer
     Dosage: 197.97 MG EVERY 3 WEEKS/100 MG VIALS (4 AT A TIME)
     Route: 065
     Dates: start: 20220829
  2. YERVOY [Suspect]
     Active Substance: IPILIMUMAB
     Indication: Bile duct cancer
     Dosage: 65.9 MG EVERY 3 WEEKS/50 MG VIALS (4 AT A TIME)
     Route: 065
     Dates: start: 20220829
  3. ELIQUIS [Concomitant]
     Active Substance: APIXABAN
     Indication: Product used for unknown indication
     Route: 065
  4. OMEPRAZOLE [Concomitant]
     Active Substance: OMEPRAZOLE
     Indication: Product used for unknown indication
     Route: 065
  5. TRAMADOL [Concomitant]
     Active Substance: TRAMADOL
     Indication: Product used for unknown indication
     Route: 065
  6. ARANESP [Concomitant]
     Active Substance: DARBEPOETIN ALFA
     Indication: Product used for unknown indication
     Route: 065

REACTIONS (2)
  - Death [Fatal]
  - Off label use [Unknown]

NARRATIVE: CASE EVENT DATE: 20220829
